FAERS Safety Report 5272501-8 (Version None)
Quarter: 2007Q1

REPORT INFORMATION
  Report Type: 
  Country: None (occurrence: None)
  Receive Date: 20061214
  Receipt Date: 20060816
  Transmission Date: 20070707
  Serious: Yes (Hospitalization, Other)
  Sender: FDA-Public Use
  Company Number: 2006080736

PATIENT
  Age: 47 Year
  Sex: Female
  Weight: 112.0385 kg

DRUGS (1)
  1. BEXTRA [Suspect]
     Indication: BACK PAIN
     Dosage: 10 MG (10 MG, 1 IN 1 D), UNKNOWN
     Dates: start: 20041004, end: 20041018

REACTIONS (4)
  - CELLULITIS [None]
  - DEEP VEIN THROMBOSIS [None]
  - SKIN REACTION [None]
  - THROMBOSIS [None]
